FAERS Safety Report 25268768 (Version 1)
Quarter: 2025Q2

REPORT INFORMATION
  Report Type: Spontaneous
  Country: US (occurrence: None)
  Receive Date: 20250504
  Receipt Date: 20250504
  Transmission Date: 20250716
  Serious: No
  Sender: FDA-CTU
  Company Number: None

PATIENT
  Age: 0 Year
  Sex: Male
  Weight: 3.15 kg

DRUGS (1)
  1. ERYTHROMYCIN [Suspect]
     Active Substance: ERYTHROMYCIN
     Indication: Eye disorder prophylaxis
     Route: 047
     Dates: start: 20230905

REACTIONS (2)
  - Ocular hyperaemia [None]
  - Eye discharge [None]

NARRATIVE: CASE EVENT DATE: 20230905
